FAERS Safety Report 10810409 (Version 1)
Quarter: 2015Q1

REPORT INFORMATION
  Report Type: Spontaneous
  Country: US (occurrence: None)
  Receive Date: 20150212
  Receipt Date: 20150212
  Transmission Date: 20150721
  Serious: Yes (Hospitalization)
  Sender: FDA-Public Use
  Company Number: None

PATIENT
  Age: 41 Year
  Sex: Male
  Weight: 90.72 kg

DRUGS (1)
  1. LEVOFLOXACIN 750MG [Suspect]
     Active Substance: LEVOFLOXACIN
     Indication: SINUSITIS
     Dates: start: 20140521, end: 20140530

REACTIONS (12)
  - Palpitations [None]
  - Arthralgia [None]
  - Pain in extremity [None]
  - Anxiety [None]
  - Toothache [None]
  - Tinnitus [None]
  - Pain [None]
  - Tendon rupture [None]
  - Back pain [None]
  - Dizziness [None]
  - Neck pain [None]
  - Fatigue [None]

NARRATIVE: CASE EVENT DATE: 20140522
